FAERS Safety Report 4558707-1 (Version None)
Quarter: 2005Q1

REPORT INFORMATION
  Report Type: 
  Country: None (occurrence: None)
  Receive Date: 20050121
  Receipt Date: 20050121
  Transmission Date: 20050727
  Serious: Yes (Hospitalization)
  Sender: FDA-Public Use
  Company Number: None

PATIENT
  Age: 69 Year
  Sex: Male
  Weight: 96.1626 kg

DRUGS (2)
  1. CARBOPLATIN IND # 64, 300 [Suspect]
     Indication: NON-SMALL CELL LUNG CANCER
     Dosage: AUC 6
     Dates: end: 20041201
  2. PACLITAXOL (WITH OR WITHOUT STA-4783) [Suspect]
     Indication: NON-SMALL CELL LUNG CANCER
     Dosage: 200 MG/M2
     Dates: end: 20041201

REACTIONS (4)
  - MENTAL STATUS CHANGES [None]
  - METASTASES TO CENTRAL NERVOUS SYSTEM [None]
  - METASTASES TO SPINE [None]
  - NECK PAIN [None]
